FAERS Safety Report 4687532-6 (Version None)
Quarter: 2005Q2

REPORT INFORMATION
  Report Type: 
  Country: None (occurrence: None)
  Receive Date: 20050608
  Receipt Date: 20050608
  Transmission Date: 20051028
  Serious: Yes (Life-Threatening)
  Sender: FDA-Public Use
  Company Number: None

PATIENT
  Age: 20 Year
  Sex: Male
  Weight: 72.5755 kg

DRUGS (4)
  1. HALDOL [Suspect]
     Indication: BIPOLAR DISORDER
     Dosage: TABLETS;   INJECTION
     Route: 048
     Dates: start: 20040310, end: 20040515
  2. HALDOL [Suspect]
     Indication: BIPOLAR DISORDER
     Dosage: TABLETS;   INJECTION
     Route: 048
     Dates: start: 20040510, end: 20040515
  3. ADIVAN [Concomitant]
  4. LITHIUM [Concomitant]

REACTIONS (5)
  - DEPRESSION [None]
  - HYPERSOMNIA [None]
  - MUSCLE TWITCHING [None]
  - SUICIDAL IDEATION [None]
  - SUICIDE ATTEMPT [None]
